FAERS Safety Report 9330525 (Version 1)
Quarter: 2013Q2

REPORT INFORMATION
  Report Type: Spontaneous
  Country: US (occurrence: US)
  Receive Date: 20130605
  Receipt Date: 20130605
  Transmission Date: 20140414
  Serious: No
  Sender: FDA-Public Use
  Company Number: US-009507513-1305USA012735

PATIENT
  Sex: Male

DRUGS (1)
  1. VICTRELIS [Suspect]
     Dosage: 12 DF, QD
     Route: 048
     Dates: start: 20130429

REACTIONS (2)
  - Underdose [Unknown]
  - Product quality issue [Unknown]
